FAERS Safety Report 15635427 (Version 3)
Quarter: 2019Q1

REPORT INFORMATION
  Report Type: Spontaneous
  Country: US (occurrence: US)
  Receive Date: 20181120
  Receipt Date: 20190129
  Transmission Date: 20190417
  Serious: Yes (Life-Threatening, Hospitalization)
  Sender: FDA-Public Use
  Company Number: US-EMD SERONO-9052556

PATIENT
  Age: 63 Year
  Sex: Female
  Weight: 61 kg

DRUGS (8)
  1. REBIF [Suspect]
     Active Substance: INTERFERON BETA-1A
     Dosage: STANDARD TITRATION DOSING
     Route: 058
     Dates: start: 201810
  2. REBIF [Suspect]
     Active Substance: INTERFERON BETA-1A
     Indication: PRODUCT USED FOR UNKNOWN INDICATION
     Route: 058
     Dates: start: 20180530
  3. CARBATROL [Concomitant]
     Active Substance: CARBAMAZEPINE
     Indication: MUSCLE SPASMS
     Dosage: 800 MILLIGRAM AT 9 IN THE MORNING AND 400 MILLIGRAM AT 9 IN THE NIGHT.
     Route: 048
  4. OXYCODONE [Concomitant]
     Active Substance: OXYCODONE
     Indication: PRODUCT USED FOR UNKNOWN INDICATION
     Route: 048
  5. POTASSIUM CHLORIDE. [Concomitant]
     Active Substance: POTASSIUM CHLORIDE
     Indication: PRODUCT USED FOR UNKNOWN INDICATION
     Route: 048
  6. AMBIEN [Concomitant]
     Active Substance: ZOLPIDEM TARTRATE
     Indication: PRODUCT USED FOR UNKNOWN INDICATION
     Route: 048
  7. REBIF [Suspect]
     Active Substance: INTERFERON BETA-1A
     Route: 058
  8. REBIF [Suspect]
     Active Substance: INTERFERON BETA-1A
     Route: 058
     Dates: start: 2018, end: 201809

REACTIONS (7)
  - Snake bite [Recovering/Resolving]
  - Animal bite [Unknown]
  - Nausea [Unknown]
  - Influenza like illness [Unknown]
  - Localised infection [Recovering/Resolving]
  - Ear pain [Not Recovered/Not Resolved]
  - Vomiting [Unknown]

NARRATIVE: CASE EVENT DATE: 2018
